FAERS Safety Report 24062090 (Version 1)
Quarter: 2024Q3

REPORT INFORMATION
  Report Type: Spontaneous
  Country: US (occurrence: US)
  Receive Date: 20240708
  Receipt Date: 20240708
  Transmission Date: 20241017
  Serious: No
  Sender: BRACCO
  Company Number: US-BRACCO-2024US01942

PATIENT
  Age: 4 Year

DRUGS (2)
  1. VUEWAY [Suspect]
     Active Substance: GADOPICLENOL
     Indication: Scan brain
     Dosage: 2 ML, SINGLE
     Route: 042
  2. SALINE [Concomitant]
     Active Substance: SODIUM CHLORIDE
     Indication: Scan brain
     Dosage: 10 ML, SINGLE
     Route: 042

REACTIONS (1)
  - Drug ineffective [Unknown]
